FAERS Safety Report 9751493 (Version 1)
Quarter: 2013Q4

REPORT INFORMATION
  Report Type: Spontaneous
  Country: US (occurrence: US)
  Receive Date: 20131212
  Receipt Date: 20131212
  Transmission Date: 20140711
  Serious: Yes (Other)
  Sender: FDA-Public Use
  Company Number: US-NAPPMUNDI-USA-2013-0108974

PATIENT
  Age: 16 Year
  Sex: Male

DRUGS (2)
  1. DILAUDID TABLET [Suspect]
     Indication: LIGAMENT RUPTURE
     Route: 048
  2. SOMA [Suspect]
     Indication: LIGAMENT RUPTURE
     Route: 065

REACTIONS (1)
  - Drug dependence [Unknown]
